FAERS Safety Report 5932801-2 (Version None)
Quarter: 2008Q4

REPORT INFORMATION
  Report Type: 
  Country: None (occurrence: None)
  Receive Date: 20081028
  Receipt Date: 20081024
  Transmission Date: 20090506
  Serious: Yes (Other)
  Sender: FDA-Public Use
  Company Number: B0543374A

PATIENT
  Sex: Female

DRUGS (4)
  1. PAXIL [Suspect]
     Indication: DRUG USE FOR UNKNOWN INDICATION
     Route: 048
     Dates: start: 20050301, end: 20060301
  2. PAXIL [Suspect]
     Route: 048
     Dates: start: 20060301, end: 20081006
  3. PAXIL [Suspect]
     Route: 048
     Dates: start: 20081007, end: 20081013
  4. PAXIL [Suspect]
     Route: 048
     Dates: start: 20081014

REACTIONS (8)
  - CONVULSION [None]
  - DIZZINESS [None]
  - DRUG EXPOSURE DURING PREGNANCY [None]
  - DRUG WITHDRAWAL SYNDROME [None]
  - NIGHT SWEATS [None]
  - NIGHTMARE [None]
  - SENSATION OF FOREIGN BODY [None]
  - TINNITUS [None]
